FAERS Safety Report 19701714 (Version 6)
Quarter: 2021Q4

REPORT INFORMATION
  Report Type: Report from Study
  Country: CN (occurrence: None)
  Receive Date: 20210813
  Receipt Date: 20211129
  Transmission Date: 20220303
  Serious: Yes (Hospitalization)
  Sender: FDA-Public Use
  Company Number: CN-ROCHE-2886879

PATIENT
  Age: 58 Year
  Sex: Male
  Weight: 58 kg

DRUGS (35)
  1. BEVACIZUMAB [Suspect]
     Active Substance: BEVACIZUMAB
     Indication: Bile duct cancer
     Dosage: THIS WAS ALSO THE MOST RECENT DOSE.
     Route: 042
     Dates: start: 20210729
  2. ATEZOLIZUMAB [Suspect]
     Active Substance: ATEZOLIZUMAB
     Indication: Bile duct cancer
     Dosage: ON 29/JUL/2021, RECEIVED LAST DOSE OF ATEZOLIZUMAB 1200 MG PRIOR TO SERIOUS ADVERSE EVENT
     Route: 041
     Dates: start: 20210729
  3. CISPLATIN [Suspect]
     Active Substance: CISPLATIN
     Indication: Bile duct cancer
     Dosage: ON DAYS 1 AND 8 OF EACH 21-DAY CYCLE FOR CYCLES 1-8.?ON 29/JUL/2021, RECEIVED MOST RECENT DOSE OF CI
     Route: 042
     Dates: start: 20210729
  4. GEMCITABINE [Suspect]
     Active Substance: GEMCITABINE
     Indication: Bile duct cancer
     Dosage: ON DAYS 1 AND 8 OF EACH 21-DAY CYCLE FOR CYCLES 1-8.?ON 29/JUL/2021, RECEIVED MOST RECENT DOSE OF GE
     Route: 042
     Dates: start: 20210729
  5. DEXAMETHASONE SODIUM PHOSPHATE [Concomitant]
     Active Substance: DEXAMETHASONE SODIUM PHOSPHATE
     Route: 042
     Dates: start: 20210729, end: 20210729
  6. TROPISETRON HYDROCHLORIDE [Concomitant]
     Active Substance: TROPISETRON HYDROCHLORIDE
     Indication: Nausea
     Dates: start: 20210729, end: 20210730
  7. TROPISETRON HYDROCHLORIDE [Concomitant]
     Active Substance: TROPISETRON HYDROCHLORIDE
     Indication: Vomiting
  8. ESOMEPRAZOLE SODIUM [Concomitant]
     Active Substance: ESOMEPRAZOLE SODIUM
     Dates: start: 20210729, end: 20210802
  9. ALPROSTADIL [Concomitant]
     Active Substance: ALPROSTADIL
     Dates: start: 20210729, end: 20210809
  10. MAGNESIUM ISOGLYCYRRHIZINATE [Concomitant]
     Active Substance: MAGNESIUM ISOGLYCYRRHIZINATE
     Dates: start: 20210729, end: 20210803
  11. MAGNESIUM ISOGLYCYRRHIZINATE [Concomitant]
     Active Substance: MAGNESIUM ISOGLYCYRRHIZINATE
     Dates: start: 20210806, end: 20210809
  12. PSEUDOEPHEDRINE HYDROCHLORIDE [Concomitant]
     Active Substance: PSEUDOEPHEDRINE HYDROCHLORIDE
     Dates: start: 20210731, end: 20210731
  13. ALBUMIN PREPARED FROM HUMAN PLASMA [Concomitant]
     Indication: Protein total decreased
     Dates: start: 20210801, end: 20210804
  14. STRUCTURAL FAT EMULSION INJECTION (C6-24) [Concomitant]
     Dates: start: 20210801, end: 20210801
  15. STRUCTURAL FAT EMULSION INJECTION (C6-24) [Concomitant]
     Dates: start: 20210803, end: 20210810
  16. AMINO ACIDS [Concomitant]
     Active Substance: AMINO ACIDS
     Dates: start: 20210801, end: 20210801
  17. AMINO ACIDS [Concomitant]
     Active Substance: AMINO ACIDS
     Dates: start: 20210803, end: 20210803
  18. AMINO ACIDS [Concomitant]
     Active Substance: AMINO ACIDS
     Dates: start: 20210803, end: 20210806
  19. AMINO ACIDS [Concomitant]
     Active Substance: AMINO ACIDS
     Dates: start: 20210806, end: 20210811
  20. CALCIUM GLUCONATE [Concomitant]
     Active Substance: CALCIUM GLUCONATE
     Indication: Mineral supplementation
     Dates: start: 20210802, end: 20210802
  21. IMIPENEM AND CILASTATIN SODIUM [Concomitant]
     Active Substance: CILASTATIN SODIUM\IMIPENEM
     Indication: Infection
     Dates: start: 20210802, end: 20210811
  22. TEICOPLANIN [Concomitant]
     Active Substance: TEICOPLANIN
     Indication: Infection
     Dates: start: 20210802, end: 20210803
  23. TROPISETRON HYDROCHLORIDE [Concomitant]
     Active Substance: TROPISETRON HYDROCHLORIDE
     Dates: start: 20210806, end: 20210806
  24. ADEMETIONINE BUTANEDISULFONATE [Concomitant]
     Active Substance: ADEMETIONINE BUTANEDISULFONATE
     Indication: Jaundice
     Dates: start: 20210729, end: 20210730
  25. ADEMETIONINE BUTANEDISULFONATE [Concomitant]
     Active Substance: ADEMETIONINE BUTANEDISULFONATE
     Dates: start: 20210730, end: 20210818
  26. VITAMINS [Concomitant]
     Active Substance: VITAMINS
     Dates: start: 20210803, end: 20210810
  27. AMIKACIN SULFATE [Concomitant]
     Active Substance: AMIKACIN SULFATE
     Indication: Infection
     Dates: start: 20210803, end: 20210810
  28. URSODIOL [Concomitant]
     Active Substance: URSODIOL
     Indication: Jaundice
     Dates: start: 20210809, end: 20210818
  29. LINAGLIPTIN [Concomitant]
     Active Substance: LINAGLIPTIN
     Indication: Blood glucose decreased
     Dates: start: 20210804, end: 20210811
  30. ZOLPIDEM TARTRATE [Concomitant]
     Active Substance: ZOLPIDEM TARTRATE
     Dates: start: 20210730, end: 20210731
  31. CEFPODOXIME PROXETIL [Concomitant]
     Active Substance: CEFPODOXIME PROXETIL
     Indication: Anti-infective therapy
     Dates: start: 20210811, end: 20210817
  32. ACETAMINOPHEN\DIHYDROCODEINE BITARTRATE [Concomitant]
     Active Substance: ACETAMINOPHEN\DIHYDROCODEINE BITARTRATE
     Indication: Pain
     Dates: start: 20210730, end: 20210804
  33. ACETAMINOPHEN\DIHYDROCODEINE BITARTRATE [Concomitant]
     Active Substance: ACETAMINOPHEN\DIHYDROCODEINE BITARTRATE
     Dates: start: 20210807, end: 20210807
  34. LIDOCAINE HYDROCHLORIDE [Concomitant]
     Active Substance: LIDOCAINE HYDROCHLORIDE
     Indication: Pain
     Dates: start: 20210808, end: 20210808
  35. MEGESTROL ACETATE [Concomitant]
     Active Substance: MEGESTROL ACETATE
     Indication: Decreased appetite
     Dates: start: 20210731, end: 20210806

REACTIONS (1)
  - Klebsiella sepsis [Recovered/Resolved]

NARRATIVE: CASE EVENT DATE: 20210731
